FAERS Safety Report 4263798-1 (Version None)
Quarter: 2004Q1

REPORT INFORMATION
  Report Type: 
  Country: None (occurrence: None)
  Receive Date: 20040102
  Receipt Date: 20031217
  Transmission Date: 20041129
  Serious: Yes (Disabling, Other)
  Sender: FDA-Public Use
  Company Number: USA031254936

PATIENT
  Age: 56 Year
  Sex: Female
  Weight: 70 kg

DRUGS (1)
  1. INSULIN-INSULIN-ANIMAL (UNKNOWN FORMULATION) (INSUL [Suspect]
     Dosage: 50 U/DAY

REACTIONS (4)
  - BLINDNESS [None]
  - FALL [None]
  - HEAD INJURY [None]
  - RETINAL DETACHMENT [None]
